FAERS Safety Report 8418958-2 (Version None)
Quarter: 2012Q2

REPORT INFORMATION
  Report Type: 
  Country: None (occurrence: None)
  Receive Date: 20120531
  Receipt Date: 20120521
  Transmission Date: 20120825
  Serious: Yes (Death, Hospitalization)
  Sender: FDA-Public Use
  Company Number: 2012S1003178

PATIENT
  Age: 59 Year
  Sex: Female

DRUGS (2)
  1. DULCOLAX [Suspect]
     Indication: CONSTIPATION
     Dates: start: 20101101, end: 20101101
  2. SODIUM PHOSPHATES [Suspect]
     Indication: CONSTIPATION
     Dosage: 266 ML;TOTAL;RTL
     Route: 054
     Dates: start: 20101102, end: 20101102

REACTIONS (6)
  - PNEUMONIA [None]
  - SHOCK [None]
  - INTESTINAL OBSTRUCTION [None]
  - DRUG INEFFECTIVE [None]
  - SEPSIS [None]
  - RENAL FAILURE ACUTE [None]
